FAERS Safety Report 4789528-2 (Version None)
Quarter: 2005Q4

REPORT INFORMATION
  Report Type: 
  Country: None (occurrence: None)
  Receive Date: 20051005
  Receipt Date: 20051005
  Transmission Date: 20060501
  Serious: Yes (Life-Threatening, Hospitalization)
  Sender: FDA-Public Use
  Company Number: None

PATIENT
  Age: 80 Year
  Sex: Female

DRUGS (5)
  1. PHENYTOIN [Suspect]
     Indication: CONVULSION
     Dosage: 250 MG PO BID
     Route: 048
  2. ASPIRIN [Concomitant]
  3. LISINOPRIL [Concomitant]
  4. ATENOLOL [Concomitant]
  5. CITALOPRAM [Concomitant]

REACTIONS (7)
  - ABDOMINAL PAIN [None]
  - BALANCE DISORDER [None]
  - DIZZINESS [None]
  - DRUG LEVEL INCREASED [None]
  - FALL [None]
  - SKIN LACERATION [None]
  - SPEECH DISORDER [None]
